FAERS Safety Report 8350170-8 (Version None)
Quarter: 2012Q2

REPORT INFORMATION
  Report Type: 
  Country: None (occurrence: None)
  Receive Date: 20120510
  Receipt Date: 20120503
  Transmission Date: 20120825
  Serious: No
  Sender: FDA-Public Use
  Company Number: US-B.I. PHARMACEUTICALS,INC./RIDGEFIELD-2012-BP-10112BP

PATIENT
  Sex: Female

DRUGS (3)
  1. PRADAXA [Suspect]
     Indication: ATRIAL FIBRILLATION
     Dosage: 300 MG
     Route: 048
     Dates: start: 20101101
  2. METOPROLOL TARTRATE [Concomitant]
     Indication: ATRIAL FIBRILLATION
     Route: 048
     Dates: start: 20060101
  3. SIMVASTATIN [Concomitant]
     Indication: BLOOD CHOLESTEROL INCREASED
     Dosage: 10 MG
     Route: 048
     Dates: start: 20060101

REACTIONS (3)
  - DYSPEPSIA [None]
  - BURNING SENSATION [None]
  - CHEST PAIN [None]
